FAERS Safety Report 19842662 (Version 2)
Quarter: 2021Q3

REPORT INFORMATION
  Report Type: Spontaneous
  Country: PL (occurrence: PL)
  Receive Date: 20210916
  Receipt Date: 20210921
  Transmission Date: 20211014
  Serious: Yes (Hospitalization, Other)
  Sender: FDA-Public Use
  Company Number: PL-BAYER-2021-210298

PATIENT
  Age: 38 Year
  Sex: Female
  Weight: 62 kg

DRUGS (1)
  1. MIRENA [Suspect]
     Active Substance: LEVONORGESTREL
     Indication: CONTRACEPTION
     Dosage: 20 ?G, CONT
     Route: 015
     Dates: start: 20161001

REACTIONS (6)
  - Device dislocation [None]
  - Drug ineffective [None]
  - Pelvic sepsis [None]
  - Pregnancy with contraceptive device [None]
  - Pyrexia [None]
  - Abortion infected [None]

NARRATIVE: CASE EVENT DATE: 20210703
